FAERS Safety Report 8470694 (Version 2)
Quarter: 2013Q1

REPORT INFORMATION
  Report Type: Spontaneous
  Country: US (occurrence: None)
  Receive Date: 20120314
  Receipt Date: 20121031
  Transmission Date: 20140127
  Serious: Yes (Disabling, Other)
  Sender: FDA-Public Use
  Company Number: 2012MA003182

PATIENT
  Sex: Female
  Weight: 61.24 kg

DRUGS (30)
  1. METOCLOPRAMIDE [Suspect]
     Indication: PRODUCT USED FOR UNKNOWN INDICATION
     Dates: start: 20060203, end: 20090831
  2. ACETAMINOPHEN W/ CODEINE [Concomitant]
  3. ACIPHEX [Concomitant]
  4. ACTOS [Concomitant]
  5. ALEVE [Concomitant]
  6. ASPIRINE [Concomitant]
  7. AVANDIA [Concomitant]
  8. AVELOX [Concomitant]
  9. AZITHROMYCIN [Concomitant]
  10. CEFDINIR [Concomitant]
  11. CIPROFLOXACIN [Concomitant]
  12. CLINDAMYCIN [Concomitant]
  13. CRESTOR [Concomitant]
  14. DIAZEPAM [Concomitant]
  15. DIOVAN [Concomitant]
  16. GLYBURIDE-METFORMIN [Concomitant]
  17. HYDROCHLOROTHIAZIDE [Concomitant]
  18. JANUVIA [Concomitant]
  19. LEVEMIR [Concomitant]
  20. LEVOTHYROXINE [Concomitant]
  21. MECLIZINE [Concomitant]
  22. METHOCARBAMOL [Concomitant]
  23. PANTOPRAZOLE [Concomitant]
  24. PNEUMOVAX [Concomitant]
  25. PREDNISONE [Concomitant]
  26. PROMETHAZINE [Concomitant]
  27. STERAPRED UNIPAK [Concomitant]
  28. STEROIDS [Concomitant]
  29. STOOL SOFTNER [Concomitant]
  30. SULINDAC [Concomitant]

REACTIONS (11)
  - Multiple injuries [None]
  - Tardive dyskinesia [None]
  - Tremor [None]
  - Emotional disorder [None]
  - Family stress [None]
  - Dyskinesia [None]
  - Asthenia [None]
  - Anxiety [None]
  - Economic problem [None]
  - Activities of daily living impaired [None]
  - Emotional distress [None]
